FAERS Safety Report 16579534 (Version 1)
Quarter: 2019Q3

REPORT INFORMATION
  Report Type: Spontaneous
  Country: DE (occurrence: DE)
  Receive Date: 20190716
  Receipt Date: 20190716
  Transmission Date: 20191004
  Serious: Yes (Hospitalization, Other)
  Sender: FDA-Public Use
  Company Number: DE-TEVA-2019-DE-1077110

PATIENT
  Age: 53 Year
  Sex: Male

DRUGS (9)
  1. SIMVASTATIN. [Concomitant]
     Active Substance: SIMVASTATIN
     Dosage: 40 MG, 0-0-1-0
  2. RAMIPRIL. [Concomitant]
     Active Substance: RAMIPRIL
     Dosage: 5 MG, 1-0-0-0
  3. GABAPENTIN. [Suspect]
     Active Substance: GABAPENTIN
     Dosage: 600 MG, 1-0-0-0
  4. PANTOPRAZOL [Concomitant]
     Active Substance: PANTOPRAZOLE SODIUM
     Dosage: 40 MG, 0-0-1-0
  5. ACETYLSALICYLS?URE [Suspect]
     Active Substance: ASPIRIN
     Dosage: 100 MG, 0-1-0-0
  6. METOPROLOL. [Concomitant]
     Active Substance: METOPROLOL
     Dosage: 95 MG, 1-0-1-0
  7. SPIRONOLACTON [Concomitant]
     Active Substance: SPIRONOLACTONE
     Dosage: 50 MG, 1-0-0-0
  8. ISOSORBIDDINITRAT [Concomitant]
     Active Substance: ISOSORBIDE DINITRATE
     Dosage: 20 MG, 1-1-0-0
  9. TRAMADOL. [Suspect]
     Active Substance: TRAMADOL
     Dosage: 200 MG, 1-0-1-0

REACTIONS (4)
  - Vomiting [Unknown]
  - Constipation [Unknown]
  - Abdominal pain lower [Unknown]
  - Syncope [Unknown]
